FAERS Safety Report 4963283-5 (Version None)
Quarter: 2006Q2

REPORT INFORMATION
  Report Type: 
  Country: None (occurrence: None)
  Receive Date: 20060405
  Receipt Date: 20060323
  Transmission Date: 20061013
  Serious: Yes (Hospitalization)
  Sender: FDA-Public Use
  Company Number: US-MERCK-0603USA03999

PATIENT
  Age: 49 Year
  Sex: Male
  Weight: 86 kg

DRUGS (17)
  1. VIOXX [Suspect]
     Indication: ARTHRITIS
     Route: 048
     Dates: start: 19990101, end: 20040901
  2. LISINOPRIL [Concomitant]
     Indication: HYPERTENSION
     Route: 065
     Dates: start: 19950101
  3. PROZAC [Concomitant]
     Indication: DEPRESSION
     Route: 065
     Dates: start: 19860101
  4. ATROVENT [Concomitant]
     Route: 065
  5. CIPRO [Concomitant]
     Route: 065
  6. ISORDIL [Concomitant]
     Route: 065
  7. RANITIDINE-BC [Concomitant]
     Route: 065
  8. ZOLPIDEM TARTRATE [Concomitant]
     Route: 065
  9. LEVOFLOXACIN [Concomitant]
     Route: 065
  10. PREVACID [Concomitant]
     Route: 065
  11. PROZAC [Concomitant]
     Route: 065
  12. HYTRIN [Concomitant]
     Route: 065
  13. ZYBAN [Concomitant]
     Route: 065
  14. NIZORAL [Concomitant]
     Route: 065
  15. VIAGRA [Concomitant]
     Indication: ERECTILE DYSFUNCTION
     Route: 065
  16. FLEXERIL [Concomitant]
     Route: 065
  17. FENTANYL CITRATE [Concomitant]
     Route: 065

REACTIONS (13)
  - ANGINA PECTORIS [None]
  - BARRETT'S OESOPHAGUS [None]
  - BIPOLAR DISORDER [None]
  - CARDIAC DISORDER [None]
  - CHEST PAIN [None]
  - CHRONIC OBSTRUCTIVE PULMONARY DISEASE [None]
  - CONSTIPATION [None]
  - CORONARY ARTERY DISEASE [None]
  - DEPRESSION [None]
  - DYSPNOEA [None]
  - HYPERTENSION [None]
  - MYOCARDIAL INFARCTION [None]
  - SMALL INTESTINAL OBSTRUCTION [None]
